FAERS Safety Report 7891820-X (Version None)
Quarter: 2011Q4

REPORT INFORMATION
  Report Type: 
  Country: None (occurrence: None)
  Receive Date: 20111103
  Receipt Date: 20110810
  Transmission Date: 20120403
  Serious: No
  Sender: FDA-Public Use
  Company Number: US-AMGEN-USASP2011040458

PATIENT
  Age: 55 Year
  Sex: Female
  Weight: 114 kg

DRUGS (8)
  1. LOSARTAN POTASSIUM [Concomitant]
     Dosage: 25 MG, UNK
     Route: 048
  2. VITAMIN D [Concomitant]
     Dosage: 5000 UNIT, UNK
     Route: 048
  3. METHOTREXATE [Concomitant]
     Dosage: 2.5 MG, UNK
     Route: 048
  4. FOLIC ACID [Concomitant]
     Dosage: 1 MG, UNK
     Route: 048
  5. MULTI-VITAMIN [Concomitant]
     Route: 048
  6. ENBREL [Suspect]
     Indication: PRODUCT USED FOR UNKNOWN INDICATION
     Dosage: 50 MG, QWK
     Route: 048
  7. IRON [Concomitant]
     Dosage: 18 MG, UNK
     Route: 048
  8. PREDNISONE [Concomitant]
     Dosage: 5 MG, UNK
     Route: 048

REACTIONS (1)
  - CONTUSION [None]
